FAERS Safety Report 16873776 (Version 1)
Quarter: 2019Q4

REPORT INFORMATION
  Report Type: Spontaneous
  Country: US (occurrence: US)
  Receive Date: 20191001
  Receipt Date: 20191001
  Transmission Date: 20200122
  Serious: Yes (Hospitalization, Other)
  Sender: FDA-Public Use
  Company Number: US-BRISTOL-MYERS SQUIBB COMPANY-BMS-2019-091663

PATIENT
  Age: 38 Year
  Sex: Male

DRUGS (3)
  1. PONATINIB [Suspect]
     Active Substance: PONATINIB
     Indication: MYELOID LEUKAEMIA
     Dosage: 45 MILLIGRAM, QD
     Route: 048
     Dates: start: 20190410
  2. SPRYCEL [Suspect]
     Active Substance: DASATINIB
     Indication: PRODUCT USED FOR UNKNOWN INDICATION
     Dosage: UNK
     Route: 065
  3. PONATINIB [Suspect]
     Active Substance: PONATINIB
     Indication: PRODUCT USED FOR UNKNOWN INDICATION
     Dosage: 30 MILLIGRAM, QD
     Route: 048

REACTIONS (32)
  - Pain in extremity [Unknown]
  - Deafness [Unknown]
  - Neuropathy peripheral [Unknown]
  - Oedema peripheral [Unknown]
  - Blood creatinine decreased [Unknown]
  - Blood glucose increased [Unknown]
  - Protein total decreased [Unknown]
  - White blood cell count decreased [Unknown]
  - Arthralgia [Unknown]
  - Abscess [Unknown]
  - Blast cell crisis [Unknown]
  - Red blood cell count decreased [Unknown]
  - Lymphocyte count decreased [Unknown]
  - Pneumonia [Unknown]
  - Visual impairment [Unknown]
  - Cough [Unknown]
  - Rash [Unknown]
  - Thrombocytopenia [Unknown]
  - Anaphylactic reaction [Unknown]
  - Red cell distribution width increased [Unknown]
  - Nucleated red cells [Unknown]
  - Musculoskeletal chest pain [Unknown]
  - Chest pain [Unknown]
  - Monocyte count decreased [Unknown]
  - Pain [Unknown]
  - Constipation [Unknown]
  - Peripheral swelling [Unknown]
  - Fatigue [Unknown]
  - Dyspnoea [Unknown]
  - Haematocrit decreased [Unknown]
  - Alanine aminotransferase increased [Unknown]
  - Blindness [Unknown]

NARRATIVE: CASE EVENT DATE: 201904
